FAERS Safety Report 8026053-X (Version None)
Quarter: 2012Q1

REPORT INFORMATION
  Report Type: 
  Country: None (occurrence: None)
  Receive Date: 20120105
  Receipt Date: 20111229
  Transmission Date: 20120608
  Serious: Yes (Hospitalization, Other)
  Sender: FDA-Public Use
  Company Number: US-US-EMD SERONO, INC.-7104104

PATIENT
  Sex: Female

DRUGS (3)
  1. REBIF [Suspect]
     Route: 058
     Dates: start: 20111201
  2. COUMADIN [Concomitant]
     Indication: THROMBOSIS
     Dates: start: 20090101
  3. REBIF [Suspect]
     Indication: MULTIPLE SCLEROSIS
     Route: 058
     Dates: start: 20110627

REACTIONS (3)
  - PNEUMONIA [None]
  - MYOMECTOMY [None]
  - INAPPROPRIATE SCHEDULE OF DRUG ADMINISTRATION [None]
